FAERS Safety Report 25957535 (Version 2)
Quarter: 2025Q4

REPORT INFORMATION
  Report Type: Other
  Country: US (occurrence: US)
  Receive Date: 20251024
  Receipt Date: 20251106
  Transmission Date: 20260117
  Serious: Yes (Other)
  Sender: APOTEX
  Company Number: US-APOTEX-2025AP031291

PATIENT
  Sex: Male

DRUGS (3)
  1. LENALIDOMIDE [Suspect]
     Active Substance: LENALIDOMIDE
     Indication: Product used for unknown indication
     Dosage: 10 MILLIGRAM
     Route: 065
     Dates: start: 202503, end: 2025
  2. LENALIDOMIDE [Suspect]
     Active Substance: LENALIDOMIDE
     Dosage: UNK (FOR 21 DAYS, THEN OFF FOR 7 DAYS)
     Route: 065
     Dates: start: 2025, end: 2025
  3. LENALIDOMIDE [Suspect]
     Active Substance: LENALIDOMIDE
     Dosage: UNK (WENT ON AGAIN)
     Route: 065
     Dates: start: 2025

REACTIONS (11)
  - Thrombosis [Recovering/Resolving]
  - Atrial fibrillation [Not Recovered/Not Resolved]
  - Ocular hyperaemia [Recovering/Resolving]
  - Periorbital swelling [Recovering/Resolving]
  - Eyelid ptosis [Recovering/Resolving]
  - Ligament sprain [Unknown]
  - Muscle strain [Unknown]
  - Treatment delayed [Unknown]
  - Product dose omission issue [Unknown]
  - Oedema [Recovering/Resolving]
  - Asthenia [Unknown]

NARRATIVE: CASE EVENT DATE: 20250101
